FAERS Safety Report 6140070-6 (Version None)
Quarter: 2009Q1

REPORT INFORMATION
  Report Type: 
  Country: None (occurrence: None)
  Receive Date: 20090324
  Receipt Date: 20090313
  Transmission Date: 20090719
  Serious: Yes (Life-Threatening)
  Sender: FDA-Public Use
  Company Number: 2009030069

PATIENT
  Age: 77 Year
  Sex: Male
  Weight: 83 kg

DRUGS (11)
  1. TORASEMIDE [Suspect]
     Indication: RENAL IMPAIRMENT
     Dosage: 20 MG (20 MG,1 IN 1 D),ORAL
     Route: 048
     Dates: start: 20090125
  2. ARCOXIA [Suspect]
     Indication: PAIN IN EXTREMITY
     Dosage: 90 MG (90 MG,1 IN 1 D),ORAL
     Route: 048
     Dates: start: 20090123, end: 20090130
  3. GABAPENTIN [Suspect]
     Indication: PERIPHERAL ARTERIAL OCCLUSIVE DISEASE
     Dosage: 600 MG (300 MG,2 IN 1 D),ORAL
     Route: 048
     Dates: start: 20090103, end: 20090130
  4. BENZBROMARONE AL [Suspect]
     Indication: GOUT
     Dosage: 100 MG (100 MG,1 IN 1 D),ORAL
     Route: 048
     Dates: start: 20090103, end: 20090130
  5. BELOC-ZOK [Suspect]
     Indication: HYPERTENSION
     Dosage: 47.5 MG (47.5 MG,1 IN 1D),ORAL
     Route: 048
     Dates: start: 19950101, end: 20090130
  6. BENAZEPRIL HYDROCHLORIDE [Suspect]
     Indication: HYPERTENSION
     Dosage: 1 DOSAGE FORMS (1 DOSAGE FORMS,1 IN 1 D),ORAL
     Route: 048
     Dates: start: 20080501, end: 20090130
  7. DIGITOXIN TAB [Suspect]
     Indication: ATRIAL FIBRILLATION
     Dosage: 0.07 MG (0.07 MG,1 IN 1 D),ORAL
     Route: 048
     Dates: start: 20070401, end: 20090129
  8. VEROSPRON [Suspect]
     Indication: OEDEMA PERIPHERAL
     Dosage: 25 MG (25 MG,1 IN 1 D),ORAL
     Route: 048
     Dates: start: 20081201, end: 20090129
  9. XIPAMIDE [Suspect]
     Indication: HYPERTENSION
     Dosage: 40 MG (40 MG,1 IN 1 D),ORAL
     Route: 048
     Dates: start: 20081201, end: 20090129
  10. FALITHROM [Concomitant]
  11. LOVASTATIN [Concomitant]

REACTIONS (11)
  - ATRIAL FIBRILLATION [None]
  - BRADYCARDIA [None]
  - DIARRHOEA [None]
  - DILATATION ATRIAL [None]
  - DRUG INTERACTION [None]
  - DYSLIPIDAEMIA [None]
  - OEDEMA PERIPHERAL [None]
  - PAIN IN EXTREMITY [None]
  - PERIPHERAL ARTERIAL OCCLUSIVE DISEASE [None]
  - RENAL FAILURE ACUTE [None]
  - VOMITING [None]
